FAERS Safety Report 7779874-2 (Version None)
Quarter: 2011Q3

REPORT INFORMATION
  Report Type: 
  Country: None (occurrence: None)
  Receive Date: 20110927
  Receipt Date: 20101005
  Transmission Date: 20111222
  Serious: No
  Sender: FDA-Public Use
  Company Number: US-ASTRAZENECA-2010SE46844

PATIENT
  Age: 59 Year
  Sex: Female
  Weight: 65.8 kg

DRUGS (3)
  1. LITHIUM [Concomitant]
  2. KLONOPIN [Concomitant]
  3. SEROQUEL XR [Suspect]
     Indication: BIPOLAR DISORDER
     Route: 048
     Dates: start: 20080101

REACTIONS (9)
  - INSOMNIA [None]
  - ABDOMINAL PAIN UPPER [None]
  - DYSPHEMIA [None]
  - IRRITABILITY [None]
  - BLOOD CHOLESTEROL INCREASED [None]
  - RASH [None]
  - MANIA [None]
  - CONSTIPATION [None]
  - WEIGHT INCREASED [None]
